FAERS Safety Report 9033749 (Version 1)
Quarter: 2013Q1

REPORT INFORMATION
  Report Type: Spontaneous
  Country: US (occurrence: US)
  Receive Date: 20130128
  Receipt Date: 20130128
  Transmission Date: 20140127
  Serious: Yes (Other)
  Sender: FDA-Public Use
  Company Number: US-AMGEN-USASP2012076398

PATIENT
  Age: 64 Year
  Sex: Female

DRUGS (7)
  1. ENBREL [Suspect]
     Indication: RHEUMATOID ARTHRITIS
     Dosage: 25 MG, 2 TIMES/WK
     Route: 058
     Dates: start: 20051017
  2. LISINOPRIL [Concomitant]
     Dosage: UNK
  3. AMLODIPINE [Concomitant]
     Dosage: UNK
  4. TRICOR                             /00090101/ [Concomitant]
     Dosage: UNK
  5. ALPRAZOLAM [Concomitant]
     Dosage: UNK
  6. VALACICLOVIR [Concomitant]
     Dosage: UNK
  7. VITAMIN D /00107901/ [Concomitant]
     Dosage: UNK

REACTIONS (2)
  - Depression [Not Recovered/Not Resolved]
  - Memory impairment [Not Recovered/Not Resolved]
